FAERS Safety Report 20561811 (Version 1)
Quarter: 2022Q1

REPORT INFORMATION
  Report Type: Spontaneous
  Country: US (occurrence: None)
  Receive Date: 20220307
  Receipt Date: 20220307
  Transmission Date: 20220424
  Serious: Yes (Hospitalization)
  Sender: FDA-Public Use
  Company Number: None

PATIENT
  Age: 37 Year
  Sex: Male

DRUGS (1)
  1. HUMIRA [Suspect]
     Active Substance: ADALIMUMAB
     Indication: Colitis ulcerative
     Dosage: OTHER FREQUENCY : OTHER;?
     Route: 058
     Dates: start: 202011

REACTIONS (5)
  - COVID-19 [None]
  - Nasopharyngitis [None]
  - Swelling [None]
  - Rash [None]
  - Rash [None]

NARRATIVE: CASE EVENT DATE: 20220221
